FAERS Safety Report 6381356-X (Version None)
Quarter: 2009Q3

REPORT INFORMATION
  Report Type: 
  Country: None (occurrence: None)
  Receive Date: 20090923
  Receipt Date: 20090914
  Transmission Date: 20100115
  Serious: Yes (Hospitalization)
  Sender: FDA-Public Use
  Company Number: 2009AL005995

PATIENT
  Age: 61 Year
  Sex: Male
  Weight: 67 kg

DRUGS (3)
  1. SERTRALINE HYDROCHLORIDE           (AELLC) [Suspect]
     Dosage: 3.1 GM; X1
  2. QUETIAPINE FUMARATE [Concomitant]
  3. ACETAMINOPHEN [Concomitant]

REACTIONS (4)
  - BODY TEMPERATURE DECREASED [None]
  - COMA [None]
  - HYPOTENSION [None]
  - MULTIPLE DRUG OVERDOSE [None]
